FAERS Safety Report 8350265-9 (Version None)
Quarter: 2012Q2

REPORT INFORMATION
  Report Type: 
  Country: None (occurrence: None)
  Receive Date: 20120510
  Receipt Date: 20120426
  Transmission Date: 20120825
  Serious: Yes (Other)
  Sender: FDA-Public Use
  Company Number: US-ROCHE-1064879

PATIENT

DRUGS (2)
  1. AVASTIN [Suspect]
     Indication: DIABETIC RETINAL OEDEMA
  2. RANIBIZUMAB [Suspect]
     Indication: DIABETIC RETINAL OEDEMA

REACTIONS (1)
  - CEREBROVASCULAR ACCIDENT [None]
